FAERS Safety Report 9314238 (Version 1)
Quarter: 2013Q2

REPORT INFORMATION
  Report Type: Spontaneous
  Country: US (occurrence: None)
  Receive Date: 20130524
  Receipt Date: 20130524
  Transmission Date: 20140414
  Serious: Yes (Other)
  Sender: FDA-Public Use
  Company Number: None

PATIENT
  Age: 51 Year
  Sex: Female
  Weight: 79.83 kg

DRUGS (1)
  1. IMMUNE GLOBULIN [Suspect]
     Dosage: 15 G  ONCE  IV
     Route: 042
     Dates: start: 20120613, end: 20120613

REACTIONS (5)
  - Infusion related reaction [None]
  - Dyspnoea [None]
  - Oxygen saturation decreased [None]
  - Rash erythematous [None]
  - Tachycardia [None]
